FAERS Safety Report 24766758 (Version 6)
Quarter: 2025Q2

REPORT INFORMATION
  Report Type: Spontaneous
  Country: US (occurrence: US)
  Receive Date: 20241223
  Receipt Date: 20250404
  Transmission Date: 20250716
  Serious: Yes (Hospitalization)
  Sender: SAREPTA THERAPEUTICS
  Company Number: US-SAREPTA THERAPEUTICS INC.-SRP2024-005402

PATIENT
  Age: 10 Year
  Sex: Male
  Weight: 40.8 kg

DRUGS (19)
  1. ELEVIDYS [Suspect]
     Active Substance: DELANDISTROGENE MOXEPARVOVEC-ROKL
     Indication: Duchenne muscular dystrophy
     Route: 042
     Dates: start: 20241209, end: 20241209
  2. COZAAR [Concomitant]
     Active Substance: LOSARTAN POTASSIUM
     Indication: Cardiovascular event prophylaxis
     Dosage: 12.5 MILLIGRAM, QD
     Route: 048
     Dates: start: 2023
  3. EPLERENONE [Concomitant]
     Active Substance: EPLERENONE
     Indication: Cardiovascular event prophylaxis
     Dosage: 25 MILLIGRAM, QD
     Route: 048
     Dates: start: 20240107
  4. EPLERENONE [Concomitant]
     Active Substance: EPLERENONE
     Indication: Fibrosis
  5. PEPCID [Concomitant]
     Active Substance: FAMOTIDINE
     Indication: Gastrointestinal disorder prophylaxis
     Dosage: 20 MILLIGRAM, QD (EVERY MORNING)
     Route: 048
     Dates: start: 202010
  6. MIRALAX [Concomitant]
     Active Substance: POLYETHYLENE GLYCOL 3350
     Indication: Constipation
     Route: 048
  7. SENNA ALEXANDRINA WHOLE [Concomitant]
     Active Substance: SENNA ALEXANDRINA WHOLE
     Indication: Constipation
     Dosage: 7.5 MILLIGRAM, QD
     Route: 048
     Dates: start: 20241216
  8. DELTASONE [Concomitant]
     Active Substance: PREDNISONE
     Indication: Duchenne muscular dystrophy
     Dosage: 40 MILLIGRAM, QD
     Route: 048
     Dates: start: 20241208
  9. COREG [Concomitant]
     Active Substance: CARVEDILOL
     Indication: Cardiovascular event prophylaxis
     Dosage: 9.375 MILLIGRAM, BID
     Route: 048
     Dates: start: 2023
  10. SOLU-CORTEF [Concomitant]
     Active Substance: HYDROCORTISONE SODIUM SUCCINATE
     Indication: Vomiting
     Route: 030
  11. CORTEF [Concomitant]
     Active Substance: HYDROCORTISONE
     Indication: Vomiting
     Dosage: 20 MILLIGRAM, TID
     Route: 048
  12. CORTEF [Concomitant]
     Active Substance: HYDROCORTISONE
     Indication: Fasting
  13. CORTEF [Concomitant]
     Active Substance: HYDROCORTISONE
     Indication: Gastroenteritis
  14. CORTEF [Concomitant]
     Active Substance: HYDROCORTISONE
     Indication: Abdominal pain
  15. EMFLAZA [Concomitant]
     Active Substance: DEFLAZACORT
     Indication: Duchenne muscular dystrophy
     Dosage: 21 MILLIGRAM, QD
     Route: 048
     Dates: start: 2021
  16. FLONASE [Concomitant]
     Active Substance: FLUTICASONE PROPIONATE
     Indication: Hypersensitivity
     Dosage: 100 MICROGRAM, QD, FOR TWO WEEKS
     Route: 045
  17. ATALUREN [Concomitant]
     Active Substance: ATALUREN
     Indication: Duchenne muscular dystrophy
     Dates: start: 2020, end: 20241130
  18. VITAMINS [Concomitant]
     Active Substance: VITAMINS
     Indication: Product used for unknown indication
  19. MELATONIN [Concomitant]
     Active Substance: MELATONIN
     Indication: Product used for unknown indication
     Route: 048

REACTIONS (1)
  - Myocarditis [Recovered/Resolved with Sequelae]

NARRATIVE: CASE EVENT DATE: 20241212
